FAERS Safety Report 21706149 (Version 1)
Quarter: 2022Q4

REPORT INFORMATION
  Report Type: Spontaneous
  Country: US (occurrence: None)
  Receive Date: 20221208
  Receipt Date: 20221208
  Transmission Date: 20230112
  Serious: Yes (Death)
  Sender: FDA-Public Use
  Company Number: None

PATIENT
  Age: 56 Year
  Sex: Male
  Weight: 69.3 kg

DRUGS (22)
  1. POMALYST [Suspect]
     Active Substance: POMALIDOMIDE
     Indication: Kaposi^s sarcoma
     Dosage: FREQUENCY : DAILY;?
     Route: 048
     Dates: start: 20221018
  2. atovaquone 750 mg/5 mL oral suspension [Concomitant]
  3. CARVEDILOL [Concomitant]
     Active Substance: CARVEDILOL
  4. CEPHALEXIN [Concomitant]
     Active Substance: CEPHALEXIN
  5. CLONAZEPAM [Concomitant]
     Active Substance: CLONAZEPAM
  6. CLONIDINE [Concomitant]
     Active Substance: CLONIDINE
  7. cyproheptadine 4 mg [Concomitant]
  8. Descovy 200 mg-25 mg [Concomitant]
  9. DEXTROAMPHET SACCHARAT, AMPHET ASPARTATE, DEXTROAMPHET SULFATE AND AMP [Concomitant]
     Active Substance: AMPHETAMINE ASPARTATE\AMPHETAMINE SULFATE\DEXTROAMPHETAMINE SACCHARATE\DEXTROAMPHETAMINE SULFATE
  10. dicyclomine 20 mg [Concomitant]
  11. ESZOPICLONE [Concomitant]
     Active Substance: ESZOPICLONE
  12. HYDROXYZINE HYDROCHLORIDE [Concomitant]
     Active Substance: HYDROXYZINE HYDROCHLORIDE
  13. LISINOPRIL [Concomitant]
     Active Substance: LISINOPRIL
  14. LORAZEPAM [Concomitant]
     Active Substance: LORAZEPAM
  15. Marinol 5 mg [Concomitant]
  16. megestrol 20 mg [Concomitant]
  17. morphine 20 mg/5 mL [Concomitant]
  18. nifedipine ER 30 mg [Concomitant]
  19. PREGABALIN [Concomitant]
     Active Substance: PREGABALIN
  20. Prezcobix 800 mg-150 mg [Concomitant]
  21. TIVICAY [Concomitant]
     Active Substance: DOLUTEGRAVIR SODIUM
  22. QUETIAPINE [Concomitant]
     Active Substance: QUETIAPINE

REACTIONS (1)
  - Death [None]
